FAERS Safety Report 11150435 (Version 4)
Quarter: 2018Q4

REPORT INFORMATION
  Report Type: Spontaneous
  Country: FR (occurrence: US)
  Receive Date: 20150531
  Receipt Date: 20181010
  Transmission Date: 20190204
  Serious: Yes (Hospitalization)
  Sender: FDA-Public Use
  Company Number: FR-MERCK-1505FRA009262

PATIENT
  Age: 74 Year
  Sex: Male
  Weight: 90 kg

DRUGS (11)
  1. VALSARTAN. [Suspect]
     Active Substance: VALSARTAN
     Dosage: 80 MG, UNK
     Route: 048
     Dates: start: 2014
  2. JANUVIA [Suspect]
     Active Substance: SITAGLIPTIN PHOSPHATE
     Dosage: 100 MG, UNK
     Route: 048
     Dates: start: 201502, end: 20150318
  3. ESOMEPRAZOLE MAGNESIUM. [Suspect]
     Active Substance: ESOMEPRAZOLE MAGNESIUM
     Dosage: 40 MG, UNK
     Route: 048
     Dates: start: 2010
  4. IMETH (METHOTREXATE) [Suspect]
     Active Substance: METHOTREXATE
     Indication: PUSTULAR PSORIASIS
     Dosage: 15 MG, UNK
     Route: 048
     Dates: start: 2013, end: 20150318
  5. ATORVASTATIN CALCIUM. [Suspect]
     Active Substance: ATORVASTATIN CALCIUM
     Dosage: 80 MG, UNK
     Route: 048
     Dates: start: 2010
  6. IBUPROFEN. [Suspect]
     Active Substance: IBUPROFEN
     Dosage: 1 TABLET:POSOLOGY UNKNOWN
     Route: 048
     Dates: start: 20150313, end: 20150313
  7. KARDEGIC [Suspect]
     Active Substance: ASPIRIN DL-LYSINE
     Dosage: 1 SACHET/DAY
     Route: 048
     Dates: start: 2010
  8. ISOPTINE LP [Suspect]
     Active Substance: VERAPAMIL HYDROCHLORIDE
     Dosage: 1 TABLET/DAY
     Route: 048
     Dates: start: 2014, end: 20150319
  9. LASILIX [Suspect]
     Active Substance: FUROSEMIDE
     Dosage: 40 MG, UNK
     Route: 048
     Dates: start: 2014
  10. METFORMIN HYDROCHLORIDE. [Suspect]
     Active Substance: METFORMIN HYDROCHLORIDE
     Dosage: 500 MG, TWO TIMES A DAY, NON AZ DRUG
     Route: 048
     Dates: start: 201502, end: 20150318
  11. SPECIAFOLDINE [Suspect]
     Active Substance: FOLIC ACID
     Dosage: 5 MG, 5 TIMES EVERY 7 DAYS
     Route: 048
     Dates: start: 2013

REACTIONS (6)
  - Psoriasis [Recovering/Resolving]
  - Pseudomonal sepsis [Unknown]
  - Leukopenia [Unknown]
  - Multiple organ dysfunction syndrome [Unknown]
  - Superinfection [Unknown]
  - Septic shock [Unknown]

NARRATIVE: CASE EVENT DATE: 20150314
